FAERS Safety Report 22264488 (Version 1)
Quarter: 2023Q2

REPORT INFORMATION
  Report Type: Spontaneous
  Country: US (occurrence: None)
  Receive Date: 20230427
  Receipt Date: 20230427
  Transmission Date: 20230722
  Serious: Yes (Other)
  Sender: FDA-Public Use
  Company Number: None

PATIENT
  Age: 40 Year
  Sex: Male
  Weight: 72 kg

DRUGS (5)
  1. SUBLOCADE [Suspect]
     Active Substance: BUPRENORPHINE
     Indication: Dependence
     Dosage: OTHER FREQUENCY : ONCE A MONTH;?
     Route: 058
     Dates: start: 20230321, end: 20230424
  2. LATUDA [Concomitant]
     Active Substance: LURASIDONE HYDROCHLORIDE
  3. BUDESONIDE [Concomitant]
     Active Substance: BUDESONIDE
  4. MOTRIN [Concomitant]
     Active Substance: IBUPROFEN
  5. TYLENOL [Concomitant]
     Active Substance: ACETAMINOPHEN

REACTIONS (5)
  - Injection site inflammation [None]
  - Injection site reaction [None]
  - Injection site ulcer [None]
  - Injection site pustule [None]
  - Injection site discharge [None]

NARRATIVE: CASE EVENT DATE: 20230321
